FAERS Safety Report 20776791 (Version 1)
Quarter: 2022Q2

REPORT INFORMATION
  Report Type: Report from Study
  Country: IT (occurrence: IT)
  Receive Date: 20220502
  Receipt Date: 20220502
  Transmission Date: 20220720
  Serious: Yes (Hospitalization)
  Sender: FDA-Public Use
  Company Number: None

PATIENT
  Age: 54 Year
  Sex: Male

DRUGS (2)
  1. MEDROL [Suspect]
     Active Substance: METHYLPREDNISOLONE
     Indication: Renal colic
     Dosage: UNK
     Dates: start: 20220405, end: 20220409
  2. IBUPROFEN [Suspect]
     Active Substance: IBUPROFEN
     Indication: Renal colic
     Dosage: UNK
     Dates: start: 20220405, end: 20220409

REACTIONS (2)
  - Haematemesis [Not Recovered/Not Resolved]
  - Gastritis erosive [Not Recovered/Not Resolved]

NARRATIVE: CASE EVENT DATE: 20220409
